FAERS Safety Report 6053925-8 (Version None)
Quarter: 2009Q1

REPORT INFORMATION
  Report Type: 
  Country: None (occurrence: None)
  Receive Date: 20090127
  Receipt Date: 20090121
  Transmission Date: 20090719
  Serious: Yes (Hospitalization)
  Sender: FDA-Public Use
  Company Number: IT-ASTRAZENECA-2009SE00474

PATIENT
  Age: 25803 Day
  Sex: Female

DRUGS (8)
  1. CRESTOR [Suspect]
     Indication: HYPERCHOLESTEROLAEMIA
     Route: 048
     Dates: start: 20070913, end: 20080727
  2. CRESTOR [Suspect]
     Route: 048
     Dates: start: 20081014, end: 20081023
  3. TORVAST [Suspect]
     Indication: HYPERCHOLESTEROLAEMIA
     Route: 048
     Dates: start: 20080727, end: 20081014
  4. CARDICOR [Concomitant]
     Route: 048
  5. ESKIM [Concomitant]
  6. EUTIROX [Concomitant]
  7. PLAVIX [Concomitant]
  8. ARMOLIPID PLUS [Concomitant]

REACTIONS (2)
  - MUSCLE SPASMS [None]
  - VERTIGO [None]
